FAERS Safety Report 19089420 (Version 3)
Quarter: 2021Q4

REPORT INFORMATION
  Report Type: Report from Study
  Country: UG (occurrence: UG)
  Receive Date: 20210403
  Receipt Date: 20211231
  Transmission Date: 20220303
  Serious: Yes (Hospitalization, Other)
  Sender: FDA-Public Use
  Company Number: UG-CIPLA LTD.-2021UG02492

PATIENT

DRUGS (6)
  1. LOPINAVIR\RITONAVIR [Suspect]
     Active Substance: LOPINAVIR\RITONAVIR
     Indication: HIV infection
     Dosage: 5 DOSAGE FORM, BID (400MG/100MG TWICE DAILY)
     Route: 048
     Dates: start: 20170807, end: 201807
  2. LOPINAVIR\RITONAVIR [Suspect]
     Active Substance: LOPINAVIR\RITONAVIR
     Dosage: 2.5 MILLIGRAM, BID (200/50)
     Route: 048
     Dates: start: 20180709, end: 20181221
  3. LAMIVUDINE\ZIDOVUDINE [Suspect]
     Active Substance: LAMIVUDINE\ZIDOVUDINE
     Indication: HIV infection
     Dosage: 2.5 DOSAGE FORM, BID (300MG/150MG BID)
     Route: 048
     Dates: start: 20170807, end: 20181221
  4. BACTRIM [Concomitant]
     Active Substance: SULFAMETHOXAZOLE\TRIMETHOPRIM
     Indication: Prophylaxis
     Dosage: UNK
     Route: 065
     Dates: start: 20170807
  5. CEFPODOXIME [Concomitant]
     Active Substance: CEFPODOXIME
     Indication: Antibiotic therapy
     Dosage: UNK
     Route: 065
     Dates: start: 20180717, end: 20180725
  6. ACETAMINOPHEN [Concomitant]
     Active Substance: ACETAMINOPHEN
     Indication: Pyrexia
     Dosage: UNK
     Route: 065
     Dates: start: 20180717, end: 20180720

REACTIONS (10)
  - Pneumonia [Recovered/Resolved]
  - Measles [Recovered/Resolved]
  - Diarrhoea [Recovered/Resolved]
  - Upper respiratory tract infection [Recovered/Resolved]
  - Otitis media chronic [Recovered/Resolved]
  - Vomiting [Recovered/Resolved]
  - Pyrexia [Recovered/Resolved]
  - Gingival ulceration [Recovered/Resolved]
  - Cough [Recovered/Resolved]
  - Iron deficiency [Recovered/Resolved]

NARRATIVE: CASE EVENT DATE: 20170718
